FAERS Safety Report 6233977-2 (Version None)
Quarter: 2009Q2

REPORT INFORMATION
  Report Type: 
  Country: None (occurrence: None)
  Receive Date: 20090618
  Receipt Date: 20090612
  Transmission Date: 20091009
  Serious: Yes (Other)
  Sender: FDA-Public Use
  Company Number: GB-SP-2009-02599

PATIENT
  Age: 77 Year
  Sex: Male

DRUGS (1)
  1. IMMUCYST [Suspect]
     Indication: DRUG USE FOR UNKNOWN INDICATION
     Dosage: NOT REPORTED
     Route: 065

REACTIONS (1)
  - TUBERCULOSIS LIVER [None]
